FAERS Safety Report 21635757 (Version 1)
Quarter: 2022Q4

REPORT INFORMATION
  Report Type: Report from Study
  Country: US (occurrence: US)
  Receive Date: 20221123
  Receipt Date: 20221123
  Transmission Date: 20230113
  Serious: No
  Sender: FDA-Public Use
  Company Number: US-ABBVIE-4158875

PATIENT
  Age: 87 Year
  Sex: Female

DRUGS (1)
  1. HUMIRA [Suspect]
     Active Substance: ADALIMUMAB
     Indication: Product used for unknown indication
     Dosage: CF PEN
     Route: 058

REACTIONS (4)
  - COVID-19 [Recovering/Resolving]
  - Weight decreased [Recovering/Resolving]
  - Nausea [Not Recovered/Not Resolved]
  - Therapeutic product effect incomplete [Recovering/Resolving]

NARRATIVE: CASE EVENT DATE: 20220901
